FAERS Safety Report 6639101-6 (Version None)
Quarter: 2010Q1

REPORT INFORMATION
  Report Type: 
  Country: None (occurrence: None)
  Receive Date: 20100317
  Receipt Date: 20100309
  Transmission Date: 20100710
  Serious: Yes (Other)
  Sender: FDA-Public Use
  Company Number: US-AMGEN-QUU388434

PATIENT
  Sex: Male
  Weight: 122.6 kg

DRUGS (7)
  1. NPLATE [Suspect]
     Indication: IDIOPATHIC THROMBOCYTOPENIC PURPURA
     Route: 058
     Dates: start: 20090731, end: 20100122
  2. CORTICOSTEROIDS [Concomitant]
     Dates: start: 20090211
  3. CLARITIN [Concomitant]
  4. DIOVAN [Concomitant]
  5. IRON [Concomitant]
  6. LEXAPRO [Concomitant]
  7. NEXIUM [Concomitant]

REACTIONS (3)
  - DRUG INEFFECTIVE [None]
  - EPISTAXIS [None]
  - THROMBOCYTOPENIA [None]
